FAERS Safety Report 21475999 (Version 1)
Quarter: 2022Q4

REPORT INFORMATION
  Report Type: Spontaneous
  Country: US (occurrence: None)
  Receive Date: 20221019
  Receipt Date: 20221019
  Transmission Date: 20230113
  Serious: Yes (Hospitalization, Other)
  Sender: FDA-Public Use
  Company Number: US-Unichem Pharmaceuticals (USA) Inc-UCM202210-001070

PATIENT
  Age: 59 Year
  Sex: Male

DRUGS (1)
  1. AMIODARONE HYDROCHLORIDE [Suspect]
     Active Substance: AMIODARONE HYDROCHLORIDE
     Indication: Ventricular tachycardia
     Dosage: UNKNOWN
     Dates: start: 2017

REACTIONS (4)
  - Cardiac arrest [Recovered/Resolved]
  - Arrhythmic storm [Recovered/Resolved]
  - Thyrotoxic crisis [Recovered/Resolved]
  - Hyperthyroidism [Recovered/Resolved]
